FAERS Safety Report 8591554-2 (Version None)
Quarter: 2012Q3

REPORT INFORMATION
  Report Type: 
  Country: None (occurrence: None)
  Receive Date: 20120814
  Receipt Date: 20120808
  Transmission Date: 20120928
  Serious: No
  Sender: FDA-Public Use
  Company Number: US-PFIZER INC-2012193775

PATIENT
  Age: 47 Year
  Sex: Female

DRUGS (2)
  1. ACCUPRIL [Suspect]
     Dosage: 20 MG, ONE SOMETHING ONCE DAILY
  2. ZOLOFT [Suspect]
     Dosage: 100, 2 SOMETHING ONCE DAILY

REACTIONS (1)
  - MALAISE [None]
